FAERS Safety Report 20206058 (Version 1)
Quarter: 2021Q4

REPORT INFORMATION
  Report Type: Spontaneous
  Country: US (occurrence: None)
  Receive Date: 20211218
  Receipt Date: 20211218
  Transmission Date: 20220303
  Serious: Yes (Other)
  Sender: FDA-Public Use
  Company Number: None

PATIENT
  Age: 12 Year
  Sex: Female
  Weight: 64.8 kg

DRUGS (1)
  1. BAMLANIVIMAB\ETESEVIMAB [Suspect]
     Active Substance: BAMLANIVIMAB\ETESEVIMAB

REACTIONS (5)
  - Angina pectoris [None]
  - Flushing [None]
  - Nausea [None]
  - Hyperhidrosis [None]
  - Infusion related reaction [None]

NARRATIVE: CASE EVENT DATE: 20211218
